FAERS Safety Report 19704110 (Version 1)
Quarter: 2021Q3

REPORT INFORMATION
  Report Type: Spontaneous
  Country: US (occurrence: US)
  Receive Date: 20210814
  Receipt Date: 20210814
  Transmission Date: 20211014
  Serious: Yes (Life-Threatening, Other)
  Sender: FDA-Public Use
  Company Number: None

PATIENT
  Age: 36 Year
  Sex: Female
  Weight: 117 kg

DRUGS (5)
  1. WIXELA INHUB [Suspect]
     Active Substance: FLUTICASONE PROPIONATE\SALMETEROL XINAFOATE
     Indication: CHRONIC OBSTRUCTIVE PULMONARY DISEASE
     Dosage: ?          OTHER STRENGTH:100/50;QUANTITY:1 INHALATION(S);?
     Route: 055
     Dates: start: 20210811, end: 20210814
  2. WIXELA INHUB [Suspect]
     Active Substance: FLUTICASONE PROPIONATE\SALMETEROL XINAFOATE
     Indication: ASTHMA
     Dosage: ?          OTHER STRENGTH:100/50;QUANTITY:1 INHALATION(S);?
     Route: 055
     Dates: start: 20210811, end: 20210814
  3. FLUTICASONE PROPIONATE. [Concomitant]
     Active Substance: FLUTICASONE PROPIONATE
  4. ALBUTEROL SULFATE. [Concomitant]
     Active Substance: ALBUTEROL SULFATE
  5. SALMETEROL [Concomitant]
     Active Substance: SALMETEROL

REACTIONS (5)
  - Cough [None]
  - Therapy non-responder [None]
  - Product substitution issue [None]
  - Dyspnoea [None]
  - Urinary incontinence [None]
